FAERS Safety Report 4734651-1 (Version None)
Quarter: 2005Q3

REPORT INFORMATION
  Report Type: 
  Country: None (occurrence: None)
  Receive Date: 20050804
  Receipt Date: 20050726
  Transmission Date: 20060218
  Serious: Yes (Other)
  Sender: FDA-Public Use
  Company Number: US-MERCK-0507USA04116

PATIENT
  Age: 68 Year
  Sex: Female

DRUGS (6)
  1. SINGULAIR [Suspect]
     Indication: ASTHMA
     Route: 048
  2. REMICADE [Suspect]
     Indication: RHEUMATOID ARTHRITIS
     Route: 042
  3. METHOTREXATE SODIUM [Concomitant]
     Route: 065
  4. FOSAMAX [Concomitant]
     Route: 048
  5. PREDNISONE [Concomitant]
     Route: 065
  6. [THERAPY UNSPECIFIED] [Concomitant]
     Route: 055

REACTIONS (4)
  - CUTANEOUS VASCULITIS [None]
  - DRUG INTERACTION [None]
  - LUNG DISORDER [None]
  - PRURITUS [None]
